FAERS Safety Report 5466791-6 (Version None)
Quarter: 2007Q3

REPORT INFORMATION
  Report Type: 
  Country: None (occurrence: None)
  Receive Date: 20070925
  Receipt Date: 20070824
  Transmission Date: 20080115
  Serious: No
  Sender: FDA-Public Use
  Company Number: US-JNJFOC-20070805946

PATIENT
  Age: 58 Year
  Sex: Female

DRUGS (11)
  1. INVEGA [Suspect]
     Indication: DRUG USE FOR UNKNOWN INDICATION
     Route: 048
  2. ASPIRIN [Concomitant]
  3. COGENTIN [Concomitant]
  4. CLONIDINE [Concomitant]
  5. HALOPERIDOL [Concomitant]
  6. HYDROCHLOROTHIAZIDE [Concomitant]
  7. SYNTHROID [Concomitant]
  8. LISINOPRIL [Concomitant]
  9. DETROL LA [Concomitant]
  10. SEROQUEL [Concomitant]
  11. MOBIC [Concomitant]

REACTIONS (1)
  - RASH [None]
